FAERS Safety Report 6175100-9 (Version None)
Quarter: 2009Q2

REPORT INFORMATION
  Report Type: 
  Country: None (occurrence: None)
  Receive Date: 20090430
  Receipt Date: 20090226
  Transmission Date: 20091009
  Serious: No
  Sender: FDA-Public Use
  Company Number: US-ASTRAZENECA-2009UW05328

PATIENT
  Sex: Female

DRUGS (5)
  1. NEXIUM [Suspect]
     Route: 048
     Dates: start: 20080101
  2. DIOVAN [Concomitant]
  3. SUCRALFATE [Concomitant]
  4. SYNTHROID [Concomitant]
  5. PRAVASTATIN [Concomitant]

REACTIONS (3)
  - DRUG INEFFECTIVE [None]
  - DYSPHAGIA [None]
  - SENSATION OF FOREIGN BODY [None]
